FAERS Safety Report 19262959 (Version 1)
Quarter: 2021Q2

REPORT INFORMATION
  Report Type: Spontaneous
  Country: TR (occurrence: TR)
  Receive Date: 20210517
  Receipt Date: 20210517
  Transmission Date: 20210717
  Serious: Yes (Hospitalization, Other)
  Sender: FDA-Public Use
  Company Number: TR-PURACAP-TR-2021EPCLIT00528

PATIENT
  Age: 32 Year
  Sex: Male

DRUGS (5)
  1. AMIODARONE [Interacting]
     Active Substance: AMIODARONE
     Route: 065
  2. NAPROXEN SODIUM. [Suspect]
     Active Substance: NAPROXEN SODIUM
     Indication: HEADACHE
     Route: 065
  3. DEXAMETHASONE. [Interacting]
     Active Substance: DEXAMETHASONE
     Indication: KOUNIS SYNDROME
     Route: 065
  4. PHENIRAMINE [Interacting]
     Active Substance: PHENIRAMINE
     Indication: KOUNIS SYNDROME
     Route: 065
  5. SODIUM CHLORIDE + GLUCOSE [Interacting]
     Active Substance: DEXTROSE\SODIUM CHLORIDE
     Indication: KOUNIS SYNDROME
     Route: 065

REACTIONS (2)
  - Atrial fibrillation [Recovering/Resolving]
  - Kounis syndrome [Recovering/Resolving]
